FAERS Safety Report 9064648 (Version 1)
Quarter: 2013Q1

REPORT INFORMATION
  Report Type: Spontaneous
  Country: US (occurrence: US)
  Receive Date: 20130214
  Receipt Date: 20130214
  Transmission Date: 20140127
  Serious: Yes (Other)
  Sender: FDA-Public Use
  Company Number: US-OTSUKA-US-2013-10159

PATIENT
  Age: 60 Year
  Sex: Female

DRUGS (4)
  1. SAMSCA [Suspect]
     Indication: INAPPROPRIATE ANTIDIURETIC HORMONE SECRETION
     Dosage: 15 MG MILLIGRAM(S), QD
     Dates: start: 20130127, end: 20130129
  2. DOCUSATE SODIUM [Concomitant]
     Dosage: 100 MG MILLIGRAM(S), UNK
  3. SALINE [Concomitant]
     Dosage: 3 % PERCENT, UNK
     Dates: start: 20130126, end: 20130126
  4. SENNA [Concomitant]
     Dosage: 2 TABS

REACTIONS (1)
  - Convulsion [Recovered/Resolved]
